FAERS Safety Report 15048945 (Version 1)
Quarter: 2018Q2

REPORT INFORMATION
  Report Type: Spontaneous
  Country: NO (occurrence: NO)
  Receive Date: 20180622
  Receipt Date: 20180622
  Transmission Date: 20180711
  Serious: Yes (Hospitalization)
  Sender: FDA-Public Use
  Company Number: NO-ABBVIE-18K-122-2393213-00

PATIENT
  Sex: Female

DRUGS (3)
  1. DUODOPA [Suspect]
     Active Substance: CARBIDOPA\LEVODOPA
     Indication: PARKINSON^S DISEASE
     Dosage: CONTINOUS DOSE: 1,5 ML/HR
     Route: 050
     Dates: start: 2013, end: 20180516
  2. DUODOPA [Suspect]
     Active Substance: CARBIDOPA\LEVODOPA
     Dosage: CONTINOUS DOSE:??11.5 ML/HR
     Route: 050
     Dates: start: 20180516, end: 2018
  3. DUODOPA [Suspect]
     Active Substance: CARBIDOPA\LEVODOPA
     Dosage: CONTINOUS DOSE:??1.5 ML/HR
     Route: 050
     Dates: start: 2018

REACTIONS (6)
  - Anger [Recovering/Resolving]
  - Overdose [Unknown]
  - Constipation [Recovered/Resolved]
  - Device programming error [Recovering/Resolving]
  - Abnormal behaviour [Recovering/Resolving]
  - Psychotic disorder [Recovering/Resolving]

NARRATIVE: CASE EVENT DATE: 20180516
